FAERS Safety Report 26029734 (Version 1)
Quarter: 2025Q4

REPORT INFORMATION
  Report Type: Spontaneous
  Country: US (occurrence: US)
  Receive Date: 20251112
  Receipt Date: 20251112
  Transmission Date: 20260118
  Serious: No
  Sender: ELI LILLY AND COMPANY
  Company Number: US-ELI_LILLY_AND_COMPANY-US202511005276

PATIENT
  Age: 65 Year
  Sex: Male

DRUGS (1)
  1. ZEPBOUND [Suspect]
     Active Substance: TIRZEPATIDE
     Indication: Weight control
     Dosage: 7.5 MG, UNKNOWN
     Route: 065
     Dates: start: 20251101

REACTIONS (7)
  - Hypersomnia [Unknown]
  - Nausea [Unknown]
  - Dyspepsia [Recovered/Resolved]
  - Fatigue [Not Recovered/Not Resolved]
  - Abdominal discomfort [Not Recovered/Not Resolved]
  - Gastrooesophageal reflux disease [Recovered/Resolved]
  - Eructation [Recovered/Resolved]

NARRATIVE: CASE EVENT DATE: 20251101
